FAERS Safety Report 12661513 (Version 1)
Quarter: 2016Q3

REPORT INFORMATION
  Report Type: Spontaneous
  Country: US (occurrence: US)
  Receive Date: 20160817
  Receipt Date: 20160817
  Transmission Date: 20161109
  Serious: No
  Sender: FDA-Public Use
  Company Number: US-PFIZER INC-2016383824

PATIENT
  Age: 45 Year
  Sex: Male
  Weight: 75.28 kg

DRUGS (14)
  1. LYRICA [Suspect]
     Active Substance: PREGABALIN
     Indication: PAIN
  2. TIZANIDINE. [Suspect]
     Active Substance: TIZANIDINE
     Indication: PAIN
     Dosage: 4 MG, DAILY, (HS)
     Route: 048
     Dates: start: 20160104
  3. TIZANIDINE. [Suspect]
     Active Substance: TIZANIDINE
     Indication: FIBROMYALGIA
  4. CYMBALTA [Suspect]
     Active Substance: DULOXETINE HYDROCHLORIDE
     Indication: PAIN
     Dosage: 60 MG, 1X/DAY
  5. TRAMADOL. [Suspect]
     Active Substance: TRAMADOL
     Indication: PAIN
     Dosage: 50 MG, AS NEEDED (1-2 TABLETS EVERY 6 HOURS)
     Dates: start: 20150827
  6. SPIRIVA [Concomitant]
     Active Substance: TIOTROPIUM BROMIDE MONOHYDRATE
     Dosage: 18 UG, DAILY, (2 INHALATIONS VIA HANDIHALER)
     Route: 055
     Dates: start: 20160104
  7. ALBUTEROL HFA [Concomitant]
     Active Substance: ALBUTEROL SULFATE
     Dosage: 90 MCG/ACTUATION AEROSOL INHALER; INHALE 2 PUFF BY INHALATION ROUTE EVERY 4 - 6 HOURS AS NEEDED
     Route: 055
     Dates: start: 20160104
  8. DULOXETINE. [Concomitant]
     Active Substance: DULOXETINE
     Dosage: 60 MG, DAILY
     Route: 048
     Dates: start: 20151130
  9. PENNSAID [Suspect]
     Active Substance: DICLOFENAC SODIUM
     Indication: PAIN
     Dosage: UNK UNK, AS NEEDED
  10. HYDROCODONE BITARTRATE AND ACETAMINOPHEN [Concomitant]
     Active Substance: ACETAMINOPHEN\HYDROCODONE BITARTRATE
     Indication: PAIN
     Dosage: 1 DF, AS NEEDED, (HYDROCODONE 5 MG - ACETAMINOPHEN 325 MG/ EVERY 8 HOURS)
     Route: 048
     Dates: start: 20150827
  11. PENNSAID [Suspect]
     Active Substance: DICLOFENAC SODIUM
     Indication: FIBROMYALGIA
  12. CYMBALTA [Suspect]
     Active Substance: DULOXETINE HYDROCHLORIDE
     Indication: FIBROMYALGIA
  13. LYRICA [Suspect]
     Active Substance: PREGABALIN
     Indication: FIBROMYALGIA
     Dosage: 200 MG, 2X/DAY
     Route: 048
     Dates: start: 20160104
  14. TRAMADOL. [Suspect]
     Active Substance: TRAMADOL
     Indication: FIBROMYALGIA

REACTIONS (1)
  - Drug ineffective [Unknown]
